FAERS Safety Report 10550385 (Version 1)
Quarter: 2014Q4

REPORT INFORMATION
  Report Type: Spontaneous
  Country: US (occurrence: US)
  Receive Date: 20141029
  Receipt Date: 20141029
  Transmission Date: 20150529
  Serious: No
  Sender: FDA-Public Use
  Company Number: US-TEVA-431311USA

PATIENT
  Age: 65 Year
  Sex: Male
  Weight: 68.1 kg

DRUGS (9)
  1. SINEMET 10/100 [Concomitant]
  2. STALEVO [Concomitant]
     Active Substance: CARBIDOPA\ENTACAPONE\LEVODOPA
  3. PROVIGIL [Suspect]
     Active Substance: MODAFINIL
     Indication: FATIGUE
     Dates: end: 20130831
  4. SEROQUEL [Concomitant]
     Active Substance: QUETIAPINE FUMARATE
  5. COGENTIN [Concomitant]
     Active Substance: BENZTROPINE MESYLATE
  6. KLONOPIN [Suspect]
     Active Substance: CLONAZEPAM
  7. DEPAKOTE [Concomitant]
     Active Substance: DIVALPROEX SODIUM
  8. BETOPTIC [Concomitant]
     Active Substance: BETAXOLOL HYDROCHLORIDE
  9. ASPIRIN. [Concomitant]
     Active Substance: ASPIRIN

REACTIONS (4)
  - Drug ineffective [Recovered/Resolved]
  - Hallucination [Recovered/Resolved]
  - Agitation [Recovered/Resolved]
  - Decreased appetite [Recovered/Resolved]

NARRATIVE: CASE EVENT DATE: 20130831
